FAERS Safety Report 5272685-1 (Version None)
Quarter: 2007Q1

REPORT INFORMATION
  Report Type: 
  Country: None (occurrence: None)
  Receive Date: 20070316
  Receipt Date: 20070316
  Transmission Date: 20070707
  Serious: Yes (Death)
  Sender: FDA-Public Use
  Company Number: None

PATIENT
  Age: 51 Year
  Sex: Male

DRUGS (2)
  1. ETOPOSIDE [Suspect]
     Indication: SMALL CELL LUNG CANCER STAGE UNSPECIFIED
     Dosage: 120 MG D1-3 Q 21 DAYS IV
     Route: 042
     Dates: start: 20070202, end: 20070204
  2. CISPLATIN [Suspect]
     Indication: SMALL CELL LUNG CANCER STAGE UNSPECIFIED
     Dosage: 120 MG D1 Q 21 DAYS IV
     Route: 042
     Dates: start: 20070202

REACTIONS (4)
  - CHEST PAIN [None]
  - NEUTROPENIA [None]
  - PHARMACEUTICAL PRODUCT COMPLAINT [None]
  - WHITE BLOOD CELL COUNT DECREASED [None]
